FAERS Safety Report 4945466-3 (Version None)
Quarter: 2006Q1

REPORT INFORMATION
  Report Type: 
  Country: None (occurrence: None)
  Receive Date: 20060316
  Receipt Date: 20060223
  Transmission Date: 20060701
  Serious: Yes (Hospitalization)
  Sender: FDA-Public Use
  Company Number: J200504366

PATIENT
  Age: 4 Year
  Sex: Female

DRUGS (3)
  1. SAWACILLIN [Suspect]
     Indication: BRONCHITIS
     Dosage: 200MG THREE TIMES PER DAY
     Route: 048
     Dates: start: 20051213, end: 20051214
  2. SAWACILLIN [Concomitant]
     Dosage: 200MG THREE TIMES PER DAY
     Route: 048
     Dates: start: 20051206, end: 20051210
  3. PERIACTIN [Concomitant]
     Indication: BRONCHITIS
     Dosage: 4MG PER DAY
     Route: 048
     Dates: start: 20051206, end: 20051214

REACTIONS (4)
  - DRUG HYPERSENSITIVITY [None]
  - ORAL PAIN [None]
  - RASH [None]
  - RASH PAPULAR [None]
